FAERS Safety Report 22604358 (Version 1)
Quarter: 2023Q2

REPORT INFORMATION
  Report Type: Other
  Country: ES (occurrence: ES)
  Receive Date: 20230615
  Receipt Date: 20230615
  Transmission Date: 20230721
  Serious: Yes (Death, Other)
  Sender: FDA-Public Use
  Company Number: None

PATIENT
  Age: 48 Year
  Sex: Male

DRUGS (1)
  1. COLCHICINE [Suspect]
     Active Substance: COLCHICINE
     Indication: Suicide attempt
     Dosage: 60 MILLIGRAM, TOTAL
     Route: 048
     Dates: start: 20221207, end: 20221207

REACTIONS (3)
  - Multiple organ dysfunction syndrome [Fatal]
  - Completed suicide [Fatal]
  - Off label use [Unknown]

NARRATIVE: CASE EVENT DATE: 20221207
